FAERS Safety Report 14473985 (Version 2)
Quarter: 2018Q1

REPORT INFORMATION
  Report Type: Spontaneous
  Country: DE (occurrence: DE)
  Receive Date: 20180201
  Receipt Date: 20180309
  Transmission Date: 20180509
  Serious: Yes (Other)
  Sender: FDA-Public Use
  Company Number: DE-ASTELLAS-2018US005511

PATIENT
  Age: 86 Year
  Sex: Male

DRUGS (3)
  1. VESIKUR [Suspect]
     Active Substance: SOLIFENACIN SUCCINATE
     Route: 048
     Dates: end: 201801
  2. VESIKUR [Suspect]
     Active Substance: SOLIFENACIN SUCCINATE
     Indication: INCONTINENCE
     Route: 048
  3. VESIKUR [Suspect]
     Active Substance: SOLIFENACIN SUCCINATE
     Route: 048

REACTIONS (3)
  - Off label use [Unknown]
  - Fall [Unknown]
  - Syncope [Unknown]

NARRATIVE: CASE EVENT DATE: 201711
